FAERS Safety Report 15897338 (Version 1)
Quarter: 2019Q1

REPORT INFORMATION
  Report Type: Spontaneous
  Country: CN (occurrence: CN)
  Receive Date: 20190131
  Receipt Date: 20190131
  Transmission Date: 20190417
  Serious: Yes (Other)
  Sender: FDA-Public Use
  Company Number: CN-GILEAD-2019-0387899

PATIENT
  Sex: Male

DRUGS (1)
  1. ADEFOVIR DIPIVOXIL. [Suspect]
     Active Substance: ADEFOVIR DIPIVOXIL
     Indication: HEPATITIS B
     Dosage: UNK
     Route: 048
     Dates: start: 200806

REACTIONS (9)
  - Fanconi syndrome [Unknown]
  - Body height decreased [Unknown]
  - Muscular weakness [Unknown]
  - Osteoporosis [Unknown]
  - Arthralgia [Unknown]
  - Osteomalacia [Unknown]
  - Back pain [Unknown]
  - Musculoskeletal pain [Unknown]
  - Bone metabolism disorder [Unknown]

NARRATIVE: CASE EVENT DATE: 201010
